FAERS Safety Report 7610515-0 (Version None)
Quarter: 2011Q3

REPORT INFORMATION
  Report Type: 
  Country: None (occurrence: None)
  Receive Date: 20110715
  Receipt Date: 20110127
  Transmission Date: 20111222
  Serious: Yes (Death, Hospitalization, Other)
  Sender: FDA-Public Use
  Company Number: US-BAYER-201015304NA

PATIENT
  Age: 81 Year
  Sex: Female
  Weight: 51.701 kg

DRUGS (10)
  1. TRASYLOL [Suspect]
     Indication: CORONARY ARTERY BYPASS
     Dosage: UNK
     Dates: start: 20041026
  2. ACETAMINOPHEN [Concomitant]
     Dosage: UNK
     Route: 048
     Dates: start: 20041001, end: 20050101
  3. AGGRENOX [Concomitant]
     Dosage: 1 TWICE DAILY
     Route: 048
     Dates: start: 20040601, end: 20050101
  4. CIPROFLOXACIN HCL [Concomitant]
     Dosage: UNK
     Dates: start: 20040601, end: 20050101
  5. PREVACID [Concomitant]
     Dosage: 30 MG, UNK
     Route: 048
     Dates: start: 20040601, end: 20050101
  6. ACETYLSALICYLIC ACID SRT [Concomitant]
     Dosage: UNK
     Route: 048
     Dates: start: 20041001, end: 20050101
  7. MULTI-VITAMINS [Concomitant]
  8. METRONIDAZOLE [Concomitant]
     Dosage: UNK
     Dates: start: 20041001, end: 20050101
  9. LORAZEPAM [Concomitant]
     Dosage: 1 MG, UNK
     Route: 048
     Dates: start: 20000101, end: 20040101
  10. TRASYLOL [Suspect]
     Indication: AORTIC VALVE REPLACEMENT

REACTIONS (6)
  - RENAL FAILURE ACUTE [None]
  - RESPIRATORY FAILURE [None]
  - RENAL FAILURE [None]
  - DEATH [None]
  - INJURY [None]
  - PAIN [None]
